FAERS Safety Report 5946482-5 (Version None)
Quarter: 2008Q4

REPORT INFORMATION
  Report Type: 
  Country: None (occurrence: None)
  Receive Date: 20081110
  Receipt Date: 20081106
  Transmission Date: 20090506
  Serious: Yes (Hospitalization)
  Sender: FDA-Public Use
  Company Number: A0755183A

PATIENT
  Sex: Female

DRUGS (4)
  1. WELLBUTRIN XL [Suspect]
     Indication: DEPRESSION
     Dosage: 150MG PER DAY
     Route: 048
     Dates: end: 20050101
  2. BUPROPION HYDROCHLORIDE [Suspect]
     Indication: DEPRESSION
     Route: 048
     Dates: start: 20080101, end: 20080101
  3. BUPROPION HYDROCHLORIDE [Suspect]
     Dosage: 100MG TWICE PER DAY
     Route: 048
     Dates: start: 20080101
  4. NO CONCURRENT MEDICATION [Concomitant]

REACTIONS (6)
  - BEDRIDDEN [None]
  - DREAMY STATE [None]
  - DRUG INEFFECTIVE [None]
  - FATIGUE [None]
  - MENINGITIS [None]
  - SLEEP DISORDER [None]
